FAERS Safety Report 8729562 (Version 4)
Quarter: 2014Q1

REPORT INFORMATION
  Report Type: Report from Study
  Country: DE (occurrence: DE)
  Receive Date: 20120817
  Receipt Date: 20140313
  Transmission Date: 20141002
  Serious: Yes (Death, Hospitalization)
  Sender: FDA-Public Use
  Company Number: DE-UCBSA-063527

PATIENT
  Sex: Female

DRUGS (12)
  1. CIMZIA [Suspect]
     Indication: RHEUMATOID ARTHRITIS
     Dosage: 200 MG
     Dates: start: 201012, end: 201106
  2. CIMZIA [Suspect]
     Indication: RHEUMATOID ARTHRITIS
     Dates: start: 201112
  3. PREDNISOLONE [Concomitant]
     Dosage: 15MS 1-0-0
  4. PANTOPRAZOLE [Concomitant]
  5. AMBROXOL [Concomitant]
     Dosage: 15 MG - HALF-HALF HALF
  6. MADOPAR [Concomitant]
     Dosage: 100/25MG 0-0-1
  7. SPRIVA [Concomitant]
     Dosage: SPRAY CPS. 18MG 2-0-0
  8. BIFITERAL [Concomitant]
     Dosage: ML 10-10-0
  9. TOREM [Concomitant]
     Dosage: 10MG 2-2-0
  10. MADOPAR DEPOT [Concomitant]
     Dosage: DEPOT CPSL. 0-0-1
  11. MONO EMBOLEX [Concomitant]
     Dosage: 8000 IE 1XSC
  12. MARCUMAR [Concomitant]

REACTIONS (7)
  - Pneumonia [Fatal]
  - Incisional hernia, obstructive [Not Recovered/Not Resolved]
  - Wound dehiscence [Not Recovered/Not Resolved]
  - Impaired healing [Not Recovered/Not Resolved]
  - Anaemia [Unknown]
  - Infection [Unknown]
  - Protein deficiency [Unknown]
